FAERS Safety Report 22251487 (Version 1)
Quarter: 2023Q2

REPORT INFORMATION
  Report Type: Spontaneous
  Country: HR (occurrence: HR)
  Receive Date: 20230425
  Receipt Date: 20230425
  Transmission Date: 20230722
  Serious: Yes (Other)
  Sender: FDA-Public Use
  Company Number: HR-Gedeon Richter Plc.-2023_GR_003443

PATIENT
  Sex: Female

DRUGS (1)
  1. LEVONORGESTREL [Suspect]
     Active Substance: LEVONORGESTREL
     Indication: Product used for unknown indication
     Dosage: 52 MG, SINGLE AT AN INITIAL RELEASE RATE OF 20 MICROGRAMS PER 24 HOURS
     Dates: end: 20210521

REACTIONS (3)
  - Sleep disorder [Recovered/Resolved]
  - Seasonal affective disorder [Recovered/Resolved]
  - Condition aggravated [Recovered/Resolved]
